FAERS Safety Report 8202550-9 (Version None)
Quarter: 2012Q1

REPORT INFORMATION
  Report Type: 
  Country: None (occurrence: None)
  Receive Date: 20120312
  Receipt Date: 20120217
  Transmission Date: 20120608
  Serious: Yes (Hospitalization)
  Sender: FDA-Public Use
  Company Number: PHHY2012MY018335

PATIENT
  Age: 29 Year
  Sex: Female
  Weight: 37 kg

DRUGS (7)
  1. PRAZOSIN HYDROCHLORIDE [Suspect]
     Indication: HYPERTENSION
     Dosage: 20 MG, ONCE/SINGLE
  2. METOPROLOL SUCCINATE [Suspect]
     Indication: HYPERTENSION
     Dosage: 200 MG, BID
  3. LABETALOL HCL [Suspect]
     Indication: HYPERTENSION
     Dosage: 300 MG, TID
  4. FELODIPINE [Suspect]
     Indication: HYPERTENSION
     Dosage: 10 MG, ONCE/SINGLE
  5. MAGNESIUM SULFATE [Suspect]
     Dosage: 40 MG, ONCE/SINGLE
  6. PHENOXYBENZAMINE [Suspect]
     Dosage: 40 MG, ONCE/SINGLE
  7. BISOPROLOL FUMARATE [Suspect]
     Indication: HYPERTENSION
     Dosage: 10 MG, BID

REACTIONS (2)
  - PULMONARY OEDEMA [None]
  - MATERNAL EXPOSURE DURING PREGNANCY [None]
